FAERS Safety Report 8364067-0 (Version None)
Quarter: 2012Q2

REPORT INFORMATION
  Report Type: 
  Country: None (occurrence: None)
  Receive Date: 20120516
  Receipt Date: 20120305
  Transmission Date: 20120825
  Serious: Yes (Hospitalization)
  Sender: FDA-Public Use
  Company Number: US-ALEXION-A201200398

PATIENT
  Sex: Male

DRUGS (4)
  1. VITAMIN B-12 [Concomitant]
     Dosage: UNK
  2. SOLIRIS [Suspect]
     Indication: PAROXYSMAL NOCTURNAL HAEMOGLOBINURIA
     Dosage: UNK
     Route: 042
     Dates: start: 20050101
  3. SOLIRIS [Suspect]
     Dosage: 900 MG, Q2W
     Route: 042
  4. PAXIL [Concomitant]
     Dosage: UNK

REACTIONS (8)
  - HEART RATE INCREASED [None]
  - BLOOD LACTATE DEHYDROGENASE INCREASED [None]
  - INSOMNIA [None]
  - HAEMOGLOBIN DECREASED [None]
  - BLOOD BILIRUBIN INCREASED [None]
  - UPPER RESPIRATORY TRACT INFECTION [None]
  - HAEMOLYSIS [None]
  - HAEMATURIA [None]
